FAERS Safety Report 10891772 (Version 2)
Quarter: 2015Q3

REPORT INFORMATION
  Report Type: Report from Study
  Country: CA (occurrence: CA)
  Receive Date: 20150306
  Receipt Date: 20150717
  Transmission Date: 20151125
  Serious: Yes (Death)
  Sender: FDA-Public Use
  Company Number: PHHY2015CA026918

PATIENT
  Age: 58 Year
  Sex: Male

DRUGS (1)
  1. CLOZARIL [Suspect]
     Active Substance: CLOZAPINE
     Indication: SCHIZOPHRENIA
     Dosage: UNK
     Route: 048
     Dates: start: 19981202

REACTIONS (3)
  - Metastatic neoplasm [Fatal]
  - Lung neoplasm malignant [Fatal]
  - Throat cancer [Fatal]

NARRATIVE: CASE EVENT DATE: 201412
